FAERS Safety Report 19069403 (Version 1)
Quarter: 2021Q1

REPORT INFORMATION
  Report Type: Spontaneous
  Country: US (occurrence: US)
  Receive Date: 20210329
  Receipt Date: 20210329
  Transmission Date: 20210420
  Serious: No
  Sender: FDA-Public Use
  Company Number: US-TEVA-2021-US-1891908

PATIENT
  Age: 83 Year
  Sex: Female

DRUGS (1)
  1. TEVA MESALAMINE [Suspect]
     Active Substance: MESALAMINE
     Indication: COLITIS ULCERATIVE
     Dosage: 1200 MILLIGRAM DAILY;
     Route: 065
     Dates: start: 2021

REACTIONS (9)
  - Decreased appetite [Not Recovered/Not Resolved]
  - Treatment noncompliance [Unknown]
  - Wrong technique in product usage process [Unknown]
  - Product use complaint [Not Recovered/Not Resolved]
  - Product residue present [Unknown]
  - Back pain [Not Recovered/Not Resolved]
  - Chills [Unknown]
  - Gait disturbance [Not Recovered/Not Resolved]
  - Product physical issue [Not Recovered/Not Resolved]

NARRATIVE: CASE EVENT DATE: 202103
